FAERS Safety Report 22217525 (Version 1)
Quarter: 2023Q2

REPORT INFORMATION
  Report Type: Spontaneous
  Country: RO (occurrence: RO)
  Receive Date: 20230417
  Receipt Date: 20230417
  Transmission Date: 20230722
  Serious: Yes (Hospitalization, Other)
  Sender: FDA-Public Use
  Company Number: RO-STERISCIENCE B.V.-2023-ST-001129

PATIENT
  Age: 73 Year
  Sex: Female

DRUGS (9)
  1. VANCOMYCIN [Suspect]
     Active Substance: VANCOMYCIN
     Indication: Endocarditis
     Dosage: UNK
     Route: 065
  2. ACENOCOUMAROL [Suspect]
     Active Substance: ACENOCOUMAROL
     Indication: Anticoagulant therapy
     Dosage: UNK
     Route: 065
  3. IMIPENEM AND CILASTATIN [Suspect]
     Active Substance: CILASTATIN SODIUM\IMIPENEM
     Indication: Endocarditis
     Dosage: UNK
     Route: 065
  4. GENTAMICIN [Concomitant]
     Active Substance: GENTAMICIN
     Indication: Endocarditis
     Dosage: UNK
     Route: 065
  5. CARVEDILOL [Concomitant]
     Active Substance: CARVEDILOL
     Indication: Drug therapy
     Dosage: UNK
     Route: 065
  6. CANDESARTAN [Concomitant]
     Active Substance: CANDESARTAN
     Indication: Drug therapy
     Dosage: UNK
     Route: 065
  7. LEVOTHYROXINE [Concomitant]
     Active Substance: LEVOTHYROXINE
     Indication: Hypothyroidism
     Dosage: UNK
     Route: 065
  8. CEFTRIAXONE [Concomitant]
     Active Substance: CEFTRIAXONE
     Indication: Urinary tract infection
     Dosage: UNK
     Route: 065
  9. AMPICILLIN [Concomitant]
     Active Substance: AMPICILLIN
     Indication: Endocarditis
     Dosage: UNK
     Route: 065

REACTIONS (4)
  - Cytopenia [Recovered/Resolved]
  - Anaemia [Recovered/Resolved]
  - International normalised ratio increased [Recovered/Resolved]
  - Thrombocytopenia [Recovered/Resolved]
